FAERS Safety Report 18267463 (Version 1)
Quarter: 2020Q3

REPORT INFORMATION
  Report Type: Spontaneous
  Country: US (occurrence: US)
  Receive Date: 20200915
  Receipt Date: 20200915
  Transmission Date: 20201103
  Serious: Yes (Disabling, Other)
  Sender: FDA-Public Use
  Company Number: US-ACCORD-198411

PATIENT
  Age: 30 Year
  Sex: Female
  Weight: 55.34 kg

DRUGS (4)
  1. ESCITALOPRAM ACCORD [Suspect]
     Active Substance: ESCITALOPRAM OXALATE
     Indication: PANIC DISORDER
     Route: 048
     Dates: start: 20200812, end: 20200822
  2. ESCITALOPRAM ACCORD [Suspect]
     Active Substance: ESCITALOPRAM OXALATE
     Indication: PANIC DISORDER
     Dosage: DOSE: 15 MG/10 MG 1/2 TABLET ONCE A DAY
     Route: 048
     Dates: start: 201912, end: 202002
  3. VALIUM [Concomitant]
     Active Substance: DIAZEPAM
     Dosage: 2.5MG/ 1/2 OF A 5MG TABLET ONCE A DAY
     Route: 048
  4. KLONOPIN [Concomitant]
     Active Substance: CLONAZEPAM

REACTIONS (8)
  - Malaise [Recovered/Resolved]
  - Dizziness [Recovered/Resolved]
  - Off label use [Unknown]
  - Withdrawal syndrome [Recovered/Resolved]
  - Panic attack [Recovered/Resolved]
  - Influenza like illness [Recovered/Resolved]
  - Weight decreased [Not Recovered/Not Resolved]
  - Hormone level abnormal [Recovered/Resolved]

NARRATIVE: CASE EVENT DATE: 20200813
